FAERS Safety Report 12284615 (Version 1)
Quarter: 2016Q2

REPORT INFORMATION
  Report Type: Spontaneous
  Country: US (occurrence: US)
  Receive Date: 20160420
  Receipt Date: 20160420
  Transmission Date: 20160815
  Serious: No
  Sender: FDA-Public Use
  Company Number: US-TEVA-588793USA

PATIENT
  Sex: Female
  Weight: 90.8 kg

DRUGS (5)
  1. PRAVASTATIN [Suspect]
     Active Substance: PRAVASTATIN\PRAVASTATIN SODIUM
     Indication: LIPIDS INCREASED
     Dosage: 20 MILLIGRAM DAILY; AT BEDTIME
     Route: 065
  2. AMLODIPINE [Concomitant]
     Active Substance: AMLODIPINE BESYLATE
  3. VITAMIN D3 [Concomitant]
     Active Substance: CHOLECALCIFEROL
  4. RAMIPRIL. [Concomitant]
     Active Substance: RAMIPRIL
  5. MULTIVITAMIN AND MINERAL [Concomitant]

REACTIONS (2)
  - Drug ineffective [Unknown]
  - Lipids increased [Unknown]

NARRATIVE: CASE EVENT DATE: 2015
